FAERS Safety Report 6501322-0 (Version None)
Quarter: 2009Q4

REPORT INFORMATION
  Report Type: 
  Country: None (occurrence: None)
  Receive Date: 20091127
  Receipt Date: 20081029
  Transmission Date: 20100525
  Serious: Yes (Disabling, Other)
  Sender: FDA-Public Use
  Company Number: WAES 0805USA00926

PATIENT
  Age: 42 Year
  Sex: Female
  Weight: 73.0291 kg

DRUGS (6)
  1. FOSAMAX [Suspect]
     Indication: BONE DENSITY DECREASED
     Dosage: 70 MG/WKY/PO
     Route: 048
     Dates: start: 20030430, end: 20040101
  2. FOSAMAX [Suspect]
     Indication: OSTEOPOROSIS
     Dosage: 70 MG/WKY/PO
     Route: 048
     Dates: start: 20030430, end: 20040101
  3. FOSAMAX [Suspect]
     Indication: BONE DENSITY DECREASED
     Dosage: 70 MG/WKY/PO
     Route: 048
     Dates: start: 20040716, end: 20060501
  4. FOSAMAX [Suspect]
     Indication: OSTEOPOROSIS
     Dosage: 70 MG/WKY/PO
     Route: 048
     Dates: start: 20040716, end: 20060501
  5. LEXAPRO [Concomitant]
  6. XANAX [Concomitant]

REACTIONS (15)
  - ANXIETY [None]
  - FOOT FRACTURE [None]
  - GASTROENTERITIS [None]
  - GASTROOESOPHAGEAL REFLUX DISEASE [None]
  - HEMICEPHALALGIA [None]
  - INSOMNIA [None]
  - MOUTH CYST [None]
  - ORAL INFECTION [None]
  - OSTEOMYELITIS [None]
  - OSTEONECROSIS [None]
  - PHARYNGITIS [None]
  - SINUSITIS [None]
  - TOOTH ABSCESS [None]
  - TOOTH INFECTION [None]
  - TOOTH LOSS [None]
